FAERS Safety Report 13397805 (Version 1)
Quarter: 2017Q2

REPORT INFORMATION
  Report Type: Spontaneous
  Country: US (occurrence: US)
  Receive Date: 20170403
  Receipt Date: 20170403
  Transmission Date: 20170830
  Serious: Yes (Hospitalization)
  Sender: FDA-Public Use
  Company Number: US-ASTRAZENECA-2017SE34055

PATIENT
  Age: 857 Month
  Sex: Female

DRUGS (17)
  1. IRON [Suspect]
     Active Substance: IRON
     Dosage: EVERY 6 MONTHS
     Route: 042
     Dates: end: 20170216
  2. VITAMIN D3 [Suspect]
     Active Substance: CHOLECALCIFEROL
     Route: 065
  3. PRILOSEC OTC [Suspect]
     Active Substance: OMEPRAZOLE MAGNESIUM
     Route: 048
  4. PREDNISONE. [Suspect]
     Active Substance: PREDNISONE
     Route: 048
  5. AMLODIPINE BESYLATE. [Suspect]
     Active Substance: AMLODIPINE BESYLATE
     Route: 048
  6. LEVOTHYROXINE. [Suspect]
     Active Substance: LEVOTHYROXINE
     Route: 048
  7. BOTOX [Suspect]
     Active Substance: ONABOTULINUMTOXINA
     Indication: HYPERTONIC BLADDER
     Dosage: EVERY 3-4 MONTHS
     Route: 065
  8. EYE DROPS [Suspect]
     Active Substance: UNSPECIFIED INGREDIENT
     Indication: GLAUCOMA
     Dosage: 1 DROP EACH EYE
     Route: 065
  9. TOFACITINIB [Suspect]
     Active Substance: TOFACITINIB
     Route: 048
     Dates: end: 201702
  10. ELIQUIS [Suspect]
     Active Substance: APIXABAN
     Route: 048
  11. ITRACONAZOLE. [Suspect]
     Active Substance: ITRACONAZOLE
     Route: 048
  12. TROSPIUM CHLORIDE. [Suspect]
     Active Substance: TROSPIUM CHLORIDE
     Route: 048
  13. VALSARTAN. [Suspect]
     Active Substance: VALSARTAN
     Route: 065
  14. CYANOCOBALAMIN. [Suspect]
     Active Substance: CYANOCOBALAMIN
     Route: 065
  15. COLESTYRAMINE [Suspect]
     Active Substance: CHOLESTYRAMINE
     Dosage: 1 SCOOP IN 4 OZ JUICE
     Route: 065
  16. PROMETHAZINE [Suspect]
     Active Substance: PROMETHAZINE\PROMETHAZINE HYDROCHLORIDE
     Route: 048
  17. TOPROL XL [Suspect]
     Active Substance: METOPROLOL SUCCINATE
     Route: 048

REACTIONS (4)
  - Viral upper respiratory tract infection [Recovered/Resolved]
  - Anaemia [Not Recovered/Not Resolved]
  - Urinary tract infection [Not Recovered/Not Resolved]
  - Malaise [Unknown]

NARRATIVE: CASE EVENT DATE: 201601
